FAERS Safety Report 9506014 (Version 1)
Quarter: 2013Q1

REPORT INFORMATION
  Report Type: Spontaneous
  Country: US (occurrence: None)
  Receive Date: 20130305
  Receipt Date: 20130305
  Transmission Date: 20140127
  Serious: No
  Sender: FDA-Public Use
  Company Number: 1000039962

PATIENT
  Sex: Male
  Weight: 61.2 kg

DRUGS (5)
  1. DALIRESP [Suspect]
     Indication: BRONCHITIS CHRONIC
     Dosage: 500 MCG (500 MCG, 1 IN 1
     Dates: start: 201209, end: 2012
  2. DALIRESP (ROFLUMILAST) (500 MICROGRAM, TABLETS) [Suspect]
     Indication: BRONCHITIS CHRONIC
     Dosage: 500 MCG (500 MCG, 1 IN 1
     Dates: start: 2012
  3. SPIRIVA (TIOTROPIUM BROMIDE [Concomitant]
  4. ADVAIR (SERETIDE) (SERETIDE) [Concomitant]
  5. MUCINEX (GUAIFENESIN) GUAIFENESIN) [Concomitant]

REACTIONS (6)
  - Dizziness [None]
  - Weight decreased [None]
  - Diarrhoea [None]
  - Insomnia [None]
  - Arthralgia [None]
  - Muscle spasms [None]
